FAERS Safety Report 18089869 (Version 1)
Quarter: 2020Q3

REPORT INFORMATION
  Report Type: Spontaneous
  Country: GB (occurrence: GB)
  Receive Date: 20200729
  Receipt Date: 20200729
  Transmission Date: 20201103
  Serious: Yes (Other)
  Sender: FDA-Public Use
  Company Number: GB-ASCEND THERAPEUTICS US, LLC-2087911

PATIENT
  Age: 51 Year
  Sex: Female

DRUGS (3)
  1. OESTRODOSE (ESTRADIOL) [Suspect]
     Active Substance: ESTRADIOL
     Route: 003
     Dates: start: 20200511
  2. ESTROGEL [Suspect]
     Active Substance: ESTRADIOL
     Indication: MENOPAUSE
     Route: 003
     Dates: start: 20200511
  3. ESTROGEL [Suspect]
     Active Substance: ESTRADIOL

REACTIONS (10)
  - Irritability [Unknown]
  - Vulvovaginal dryness [Unknown]
  - Arthralgia [Unknown]
  - Menopausal symptoms [Not Recovered/Not Resolved]
  - Drug ineffective [Unknown]
  - Haemorrhage [Unknown]
  - Product substitution issue [Unknown]
  - Clumsiness [Unknown]
  - Night sweats [Unknown]
  - Anxiety [Unknown]

NARRATIVE: CASE EVENT DATE: 20200513
